FAERS Safety Report 8483047-8 (Version None)
Quarter: 2012Q3

REPORT INFORMATION
  Report Type: 
  Country: None (occurrence: None)
  Receive Date: 20120702
  Receipt Date: 20120628
  Transmission Date: 20120928
  Serious: Yes (Death, Hospitalization, Other)
  Sender: FDA-Public Use
  Company Number: BR-ABBOTT-12P-020-0933755-00

PATIENT
  Sex: Male

DRUGS (9)
  1. ETRAVIRINE [Suspect]
     Indication: HIV INFECTION
     Dosage: DAILY
     Route: 048
     Dates: start: 20110101, end: 20120308
  2. DOLUTEGRAVIR TABLET [Suspect]
     Indication: HIV INFECTION
     Dosage: DAILY
     Dates: start: 20120202
  3. PACLITAXEL [Suspect]
     Indication: KAPOSI'S SARCOMA
     Dosage: DAILY
     Route: 042
     Dates: start: 20100901
  4. MARAVIROC [Suspect]
     Indication: HIV INFECTION
     Dosage: DAILY
     Route: 048
     Dates: start: 20110101, end: 20120308
  5. COMBIVIR [Suspect]
     Indication: HIV INFECTION
     Route: 048
     Dates: start: 20120202
  6. GANCICLOVIR [Suspect]
     Indication: CYTOMEGALOVIRUS CHORIORETINITIS
     Dosage: DAILY
     Route: 042
     Dates: start: 20120215, end: 20120305
  7. DARUNAVIR HYDRATE [Suspect]
     Indication: HIV INFECTION
     Dosage: DAILY
     Route: 048
     Dates: start: 20090201, end: 20120308
  8. NORVIR [Suspect]
     Indication: HIV INFECTION
     Dosage: DAILY
     Route: 048
     Dates: start: 20000301, end: 20120308
  9. GANCICLOVIR [Suspect]
     Route: 042
     Dates: start: 20120306, end: 20120306

REACTIONS (7)
  - TUMOUR NECROSIS [None]
  - CYTOMEGALOVIRUS CHORIORETINITIS [None]
  - ANAEMIA [None]
  - KAPOSI'S SARCOMA [None]
  - LEUKOPENIA [None]
  - PULMONARY HAEMORRHAGE [None]
  - IMMUNE RECONSTITUTION SYNDROME [None]
